FAERS Safety Report 14057141 (Version 2)
Quarter: 2019Q2

REPORT INFORMATION
  Report Type: Spontaneous
  Country: US (occurrence: US)
  Receive Date: 20171006
  Receipt Date: 20190402
  Transmission Date: 20190711
  Serious: Yes (Other)
  Sender: FDA-Public Use
  Company Number: US-TAKEDA-2017MPI008559

PATIENT
  Age: 62 Year
  Sex: Male

DRUGS (9)
  1. NINLARO [Suspect]
     Active Substance: IXAZOMIB CITRATE
     Indication: PLASMA CELL MYELOMA
     Dosage: 3 MILLIGRAM, QD
     Route: 048
     Dates: start: 201603
  2. NEXIUM [Concomitant]
     Active Substance: ESOMEPRAZOLE MAGNESIUM
  3. REVLIMID [Suspect]
     Active Substance: LENALIDOMIDE
     Indication: PRODUCT USED FOR UNKNOWN INDICATION
     Route: 065
  4. MOBIC [Concomitant]
     Active Substance: MELOXICAM
  5. NINLARO [Suspect]
     Active Substance: IXAZOMIB CITRATE
     Dosage: 3 MILLIGRAM, UNK
     Route: 048
     Dates: start: 20170104
  6. XARELTO [Concomitant]
     Active Substance: RIVAROXABAN
  7. ASA [Concomitant]
     Active Substance: ASPIRIN
  8. METOPROL XL [Concomitant]
  9. NEURONTIN [Concomitant]
     Active Substance: GABAPENTIN

REACTIONS (2)
  - Rash [Unknown]
  - Diarrhoea [Unknown]

NARRATIVE: CASE EVENT DATE: 20171002
